FAERS Safety Report 7657809-0 (Version None)
Quarter: 2011Q3

REPORT INFORMATION
  Report Type: 
  Country: None (occurrence: None)
  Receive Date: 20110805
  Receipt Date: 20090601
  Transmission Date: 20111222
  Serious: No
  Sender: FDA-Public Use
  Company Number: US-BIOGENIDEC-2009BI017289

PATIENT
  Age: 22 Year
  Sex: Female

DRUGS (2)
  1. TYSABRI [Suspect]
     Indication: MULTIPLE SCLEROSIS
     Route: 042
     Dates: start: 20080625, end: 20081223
  2. TYSABRI [Suspect]
     Route: 042
     Dates: start: 20100226, end: 20101008

REACTIONS (3)
  - STRESS [None]
  - MOOD SWINGS [None]
  - EMOTIONAL DISORDER [None]
